FAERS Safety Report 4446923-9 (Version None)
Quarter: 2004Q3

REPORT INFORMATION
  Report Type: 
  Country: None (occurrence: None)
  Receive Date: 20040908
  Receipt Date: 20040824
  Transmission Date: 20050211
  Serious: Yes (Death)
  Sender: FDA-Public Use
  Company Number: J081-002-001749

PATIENT
  Age: 91 Year
  Sex: Male

DRUGS (3)
  1. ARICEPT [Suspect]
     Indication: DEMENTIA ALZHEIMER'S TYPE
     Dosage: 5 MG, 1 IN 1 D, ORAL
     Route: 048
     Dates: start: 20040210
  2. NIVADIL (NILVADIPINE) [Concomitant]
  3. GASTER (FAMOTIDINE) [Concomitant]

REACTIONS (2)
  - HEAT STROKE [None]
  - PORIOMANIA [None]
